FAERS Safety Report 4483812-8 (Version None)
Quarter: 2004Q4

REPORT INFORMATION
  Report Type: 
  Country: None (occurrence: None)
  Receive Date: 20041025
  Receipt Date: 20041008
  Transmission Date: 20050328
  Serious: No
  Sender: FDA-Public Use
  Company Number: PHEH2004US10852

PATIENT
  Age: 45 Year
  Sex: Female

DRUGS (9)
  1. ZELNORM [Suspect]
     Indication: IRRITABLE BOWEL SYNDROME
     Dosage: 6 MG, QD
     Route: 048
     Dates: start: 20030901, end: 20040601
  2. REMICADE [Concomitant]
  3. CYANOCOBALAMIN [Concomitant]
  4. ALLOPURINOL [Concomitant]
  5. SALAGEN [Concomitant]
  6. SULFASALAZINE [Concomitant]
  7. FOLIC ACID [Concomitant]
  8. VALTREX [Concomitant]
  9. ALLERGY MEDICATION [Concomitant]

REACTIONS (1)
  - ASPARTATE AMINOTRANSFERASE INCREASED [None]
